FAERS Safety Report 8522567-4 (Version None)
Quarter: 2012Q3

REPORT INFORMATION
  Report Type: 
  Country: None (occurrence: None)
  Receive Date: 20120719
  Receipt Date: 20120713
  Transmission Date: 20120928
  Serious: Yes (Hospitalization)
  Sender: FDA-Public Use
  Company Number: CA-JNJFOC-20120707223

PATIENT
  Sex: Female
  Weight: 127 kg

DRUGS (10)
  1. CITALOPRAM HYDROBROMIDE [Concomitant]
  2. XALATAN [Concomitant]
  3. NAPROXEN [Concomitant]
  4. HYDROCHLOROTHIAZIDE [Concomitant]
  5. ATACAND [Concomitant]
  6. SYNTHROID [Concomitant]
  7. STELARA [Suspect]
     Indication: PSORIASIS
     Route: 058
     Dates: start: 20111026, end: 20120713
  8. PANTOPRAZOLE SODIUM [Concomitant]
  9. FOLIC ACID [Concomitant]
  10. PENNSAID [Concomitant]

REACTIONS (1)
  - RETINAL DETACHMENT [None]
